FAERS Safety Report 8905710 (Version 2)
Quarter: 2012Q4

REPORT INFORMATION
  Report Type: 
  Country: JP (occurrence: JP)
  Receive Date: 20121111
  Receipt Date: 20121212
  Transmission Date: 20130627
  Serious: Yes (Hospitalization)
  Sender: FDA-Public Use
  Company Number: PHHY2012JP103120

PATIENT
  Age: 81 Year
  Sex: Female

DRUGS (2)
  1. RIVASTIGMIN [Suspect]
     Indication: DEMENTIA ALZHEIMER^S TYPE
     Dosage: UNK UKN, UNK
     Route: 062
     Dates: end: 201207
  2. RIVASTIGMIN [Suspect]
     Dosage: 18 mg, daily
     Route: 062
     Dates: start: 201207, end: 201211

REACTIONS (4)
  - Fracture [Unknown]
  - Fall [Unknown]
  - Aggression [Recovered/Resolved]
  - Restlessness [Not Recovered/Not Resolved]
